FAERS Safety Report 17213187 (Version 3)
Quarter: 2020Q4

REPORT INFORMATION
  Report Type: Spontaneous
  Country: JP (occurrence: JP)
  Receive Date: 20191230
  Receipt Date: 20201005
  Transmission Date: 20210113
  Serious: Yes (Hospitalization)
  Sender: FDA-Public Use
  Company Number: NVSC2019JP081262

PATIENT
  Age: 61 Year
  Sex: Female
  Weight: 52 kg

DRUGS (3)
  1. IMUSERA [Suspect]
     Active Substance: FINGOLIMOD HYDROCHLORIDE
     Indication: MULTIPLE SCLEROSIS
     Dosage: 0.5 MG, QD
     Route: 048
     Dates: start: 20160329, end: 20160329
  2. IMUSERA [Suspect]
     Active Substance: FINGOLIMOD HYDROCHLORIDE
     Dosage: 0.5 MG ONCE IN 3 DAYS
     Route: 048
     Dates: start: 20200528
  3. IMUSERA [Suspect]
     Active Substance: FINGOLIMOD HYDROCHLORIDE
     Dosage: 0.5 MG, QOD
     Route: 048
     Dates: start: 20190130, end: 20200527

REACTIONS (1)
  - Gastrointestinal stromal tumour [Recovered/Resolved with Sequelae]

NARRATIVE: CASE EVENT DATE: 20191225
